FAERS Safety Report 18353547 (Version 4)
Quarter: 2020Q4

REPORT INFORMATION
  Report Type: Spontaneous
  Country: US (occurrence: US)
  Receive Date: 20201007
  Receipt Date: 20201214
  Transmission Date: 20210114
  Serious: Yes (Other)
  Sender: FDA-Public Use
  Company Number: US-ROCHE-2690511

PATIENT
  Sex: Female

DRUGS (21)
  1. MORPHINE SULFATE. [Concomitant]
     Active Substance: MORPHINE SULFATE
     Dosage: EXTENDED-RELEASE
  2. OXYCODONE [Concomitant]
     Active Substance: OXYCODONE
  3. ROPINIROLE. [Concomitant]
     Active Substance: ROPINIROLE
  4. TRAZODONE [Concomitant]
     Active Substance: TRAZODONE HYDROCHLORIDE
  5. CEPHALEXIN. [Concomitant]
     Active Substance: CEPHALEXIN
  6. GALANTAMINE. [Concomitant]
     Active Substance: GALANTAMINE
  7. ACTEMRA [Suspect]
     Active Substance: TOCILIZUMAB
     Indication: RHEUMATOID ARTHRITIS
     Route: 058
  8. DUREZOL [Concomitant]
     Active Substance: DIFLUPREDNATE
  9. KLOR-CON [Concomitant]
     Active Substance: POTASSIUM CHLORIDE
     Dosage: EXTENDED-RELEASE
  10. ONDANSETRON [Concomitant]
     Active Substance: ONDANSETRON
     Dosage: ODT
  11. TIMOLOL. [Concomitant]
     Active Substance: TIMOLOL
     Route: 047
  12. BACLOFEN. [Concomitant]
     Active Substance: BACLOFEN
  13. LEFLUNOMIDE. [Concomitant]
     Active Substance: LEFLUNOMIDE
  14. SULFASALAZINE DELAYED-RELEASE [Concomitant]
     Active Substance: SULFASALAZINE
  15. FUROSEMIDE. [Concomitant]
     Active Substance: FUROSEMIDE
  16. SPIRONOLACTONE. [Concomitant]
     Active Substance: SPIRONOLACTONE
  17. OMEPRAZOLE. [Concomitant]
     Active Substance: OMEPRAZOLE
  18. ACTEMRA [Suspect]
     Active Substance: TOCILIZUMAB
     Dosage: 162MG/0.9ML
     Route: 058
  19. ARAVA [Concomitant]
     Active Substance: LEFLUNOMIDE
  20. BRIMONIDINE [Concomitant]
     Active Substance: BRIMONIDINE TARTRATE
     Route: 047
  21. NITROFURANTOIN. [Concomitant]
     Active Substance: NITROFURANTOIN

REACTIONS (3)
  - Urinary retention [Not Recovered/Not Resolved]
  - Urinary tract infection [Not Recovered/Not Resolved]
  - Dementia [Not Recovered/Not Resolved]
